FAERS Safety Report 15849214 (Version 2)
Quarter: 2019Q1

REPORT INFORMATION
  Report Type: Spontaneous
  Country: NL (occurrence: NL)
  Receive Date: 20190121
  Receipt Date: 20190124
  Transmission Date: 20190417
  Serious: Yes (Other)
  Sender: FDA-Public Use
  Company Number: NL-MYLANLABS-2019M1004035

PATIENT
  Age: 54 Year
  Sex: Female
  Weight: 73 kg

DRUGS (1)
  1. TAMOXIFEN [Suspect]
     Active Substance: TAMOXIFEN
     Indication: BREAST CANCER
     Dosage: 20 MILLIGRAM, QD (1X PER DAG 1 TABLET)
     Route: 048
     Dates: start: 201309, end: 20180608

REACTIONS (3)
  - Cervix carcinoma [Unknown]
  - Endometrial cancer [Unknown]
  - Arthropathy [Unknown]

NARRATIVE: CASE EVENT DATE: 20180607
